FAERS Safety Report 10537456 (Version 2)
Quarter: 2014Q4

REPORT INFORMATION
  Report Type: Spontaneous
  Country: US (occurrence: US)
  Receive Date: 20141023
  Receipt Date: 20141114
  Transmission Date: 20150529
  Serious: No
  Sender: FDA-Public Use
  Company Number: US-AMGEN-USASP2014080792

PATIENT
  Age: 32 Year
  Sex: Female

DRUGS (4)
  1. SERTRALINE [Concomitant]
     Active Substance: SERTRALINE HYDROCHLORIDE
     Dosage: 50 UNK, QD
     Route: 048
  2. CLOBETASOL [Concomitant]
     Active Substance: CLOBETASOL
     Dosage: UNK
     Route: 061
  3. DIFFERIN [Concomitant]
     Active Substance: ADAPALENE
     Dosage: UNK
     Route: 061
  4. ENBREL [Suspect]
     Active Substance: ETANERCEPT
     Indication: PSORIASIS
     Dosage: 50 MG, 2 TIMES/WK
     Route: 058
     Dates: start: 201407

REACTIONS (5)
  - Pruritus [Not Recovered/Not Resolved]
  - Nasopharyngitis [Not Recovered/Not Resolved]
  - Dry eye [Not Recovered/Not Resolved]
  - Psoriasis [Not Recovered/Not Resolved]
  - Throat irritation [Not Recovered/Not Resolved]

NARRATIVE: CASE EVENT DATE: 20141014
